FAERS Safety Report 5406426-1 (Version None)
Quarter: 2007Q3

REPORT INFORMATION
  Report Type: 
  Country: None (occurrence: None)
  Receive Date: 20070713
  Receipt Date: 20070416
  Transmission Date: 20080115
  Serious: Yes (Hospitalization)
  Sender: FDA-Public Use
  Company Number: US-JNJFOC-20070404079

PATIENT
  Age: 31 Year
  Sex: Female

DRUGS (8)
  1. ORTHO EVRA [Suspect]
     Indication: MENORRHAGIA
     Dosage: TRANSDERMAL
     Route: 062
     Dates: start: 20060501, end: 20060701
  2. LEXAPRO [Concomitant]
  3. PROTONIX [Concomitant]
  4. TRAZODONE HCL [Concomitant]
  5. MIRAPEX [Concomitant]
  6. REGLAN [Concomitant]
  7. LOMOTIL [Concomitant]
  8. LEVOTHROXINE (LEVOTHROXINE) [Concomitant]

REACTIONS (6)
  - APPLICATION SITE IRRITATION [None]
  - DEEP VEIN THROMBOSIS [None]
  - HEADACHE [None]
  - NAUSEA [None]
  - PULMONARY EMBOLISM [None]
  - THROMBOPHLEBITIS SUPERFICIAL [None]
